FAERS Safety Report 9064691 (Version 2)
Quarter: 2013Q1

REPORT INFORMATION
  Report Type: Spontaneous
  Country: US (occurrence: US)
  Receive Date: 20130129
  Receipt Date: 20130305
  Transmission Date: 20140127
  Serious: Yes (Hospitalization, Other)
  Sender: FDA-Public Use
  Company Number: US-RB-045423-12

PATIENT
  Age: 39 Year
  Sex: Female

DRUGS (7)
  1. SUBOXONE FILM [Suspect]
     Indication: DRUG DEPENDENCE
     Dosage: SUBOXONE FILM
     Route: 060
     Dates: start: 20120203, end: 20120203
  2. SUBOXONE FILM [Suspect]
     Dosage: SUBOXONE FILM
     Route: 060
     Dates: start: 20120204, end: 201206
  3. SUBOXONE FILM [Suspect]
     Dosage: SUBOXONE FILM; VARIOUS TAPERED DOSES
     Route: 060
     Dates: start: 201206, end: 201209
  4. WARFARIN [Suspect]
     Indication: DEEP VEIN THROMBOSIS
     Route: 060
     Dates: start: 201202, end: 201209
  5. WARFARIN [Suspect]
     Indication: PULMONARY EMBOLISM
     Route: 060
     Dates: start: 201202, end: 201209
  6. SAFYRAL [Suspect]
     Indication: CONTRACEPTION
     Dosage: DOSING DETAILS UNKNOWN
     Route: 048
     Dates: start: 201111, end: 201202
  7. CYMBALTA [Suspect]
     Indication: DEPRESSION
     Dosage: UNKNOWN DOSAGE DETAILS
     Route: 065

REACTIONS (11)
  - Off label use [Recovered/Resolved]
  - Deep vein thrombosis [Recovered/Resolved]
  - Pulmonary embolism [Recovered/Resolved]
  - Wrong technique in drug usage process [Recovered/Resolved]
  - Underdose [Recovered/Resolved]
  - Exposure during pregnancy [Recovered/Resolved]
  - Victim of spousal abuse [Recovered/Resolved]
  - Drug withdrawal syndrome [Recovered/Resolved]
  - Dyspnoea [Recovered/Resolved]
  - Decreased appetite [Recovered/Resolved]
  - Abortion spontaneous [Recovered/Resolved]
